FAERS Safety Report 21850338 (Version 1)
Quarter: 2023Q1

REPORT INFORMATION
  Report Type: Spontaneous
  Country: ES (occurrence: ES)
  Receive Date: 20230111
  Receipt Date: 20230111
  Transmission Date: 20230418
  Serious: Yes (Other)
  Sender: FDA-Public Use
  Company Number: ES-EXELIXIS-CABO-22057894

PATIENT
  Age: 59 Year
  Sex: Female

DRUGS (3)
  1. SORAFENIB [Suspect]
     Active Substance: SORAFENIB
     Indication: Follicular thyroid cancer
     Dosage: UNK
     Route: 065
  2. CABOMETYX [Suspect]
     Active Substance: CABOZANTINIB S-MALATE
     Indication: Follicular thyroid cancer
     Dosage: 40 MILLIGRAM (40 MG)
     Route: 065
  3. CABOMETYX [Suspect]
     Active Substance: CABOZANTINIB S-MALATE
     Dosage: 60 MG, QD
     Route: 065
     Dates: start: 202006

REACTIONS (14)
  - Hemiparesis [Unknown]
  - Metastases to central nervous system [Unknown]
  - Pulmonary embolism [Recovered/Resolved]
  - Metastases to lymph nodes [Unknown]
  - Hemianopia [Unknown]
  - Metastases to meninges [Unknown]
  - Dysarthria [Unknown]
  - Skin toxicity [Unknown]
  - Gastrointestinal toxicity [Unknown]
  - Disturbance in attention [Unknown]
  - Off label use [Unknown]
  - Headache [Unknown]
  - Alopecia [Unknown]
  - Asthenia [Unknown]
